FAERS Safety Report 10195101 (Version 2)
Quarter: 2014Q2

REPORT INFORMATION
  Report Type: Spontaneous
  Country: US (occurrence: US)
  Receive Date: 20140526
  Receipt Date: 20140623
  Transmission Date: 20141212
  Serious: No
  Sender: FDA-Public Use
  Company Number: US-B.I. PHARMACEUTICALS,INC./RIDGEFIELD-2014-BI-21438BP

PATIENT
  Age: 44 Year
  Sex: Female

DRUGS (4)
  1. SPIRIVA [Suspect]
     Indication: PRODUCT USED FOR UNKNOWN INDICATION
     Dosage: 18 MCG
     Route: 055
     Dates: start: 20140426
  2. FLOVENT [Concomitant]
     Dosage: 2 PUF
     Route: 055
  3. PROAIR [Concomitant]
     Indication: DYSPNOEA
     Route: 055
  4. PROAIR [Concomitant]
     Indication: WHEEZING

REACTIONS (2)
  - Drug ineffective [Recovered/Resolved]
  - Product quality issue [Recovered/Resolved]
